FAERS Safety Report 6368290-6 (Version None)
Quarter: 2009Q3

REPORT INFORMATION
  Report Type: 
  Country: None (occurrence: None)
  Receive Date: 20090917
  Receipt Date: 20090917
  Transmission Date: 20100115
  Serious: Yes (Hospitalization)
  Sender: FDA-Public Use
  Company Number: None

PATIENT
  Age: 50 Year
  Sex: Female
  Weight: 58.9676 kg

DRUGS (1)
  1. CVS C-LAX BISACODYL 5 MG TIME-CAP LABS / PL DEVELOPMENTS [Suspect]
     Indication: CONSTIPATION
     Dosage: 3 TABLETS ONCE PO
     Route: 048
     Dates: start: 20090606, end: 20090606

REACTIONS (5)
  - ABDOMINAL PAIN [None]
  - ABDOMINAL PAIN UPPER [None]
  - COLD SWEAT [None]
  - FREQUENT BOWEL MOVEMENTS [None]
  - PRESYNCOPE [None]
